FAERS Safety Report 12115933 (Version 1)
Quarter: 2016Q1

REPORT INFORMATION
  Report Type: Spontaneous
  Country: US (occurrence: US)
  Receive Date: 20160225
  Receipt Date: 20160225
  Transmission Date: 20160526
  Serious: No
  Sender: FDA-Public Use
  Company Number: US-LANTHEUS-LMI-2015-00434

PATIENT
  Age: 68 Year
  Sex: Male
  Weight: 81 kg

DRUGS (18)
  1. PLAVIX [Concomitant]
     Active Substance: CLOPIDOGREL BISULFATE
     Indication: PRODUCT USED FOR UNKNOWN INDICATION
  2. MULTIVITAMIN [Concomitant]
     Active Substance: VITAMINS
     Indication: PRODUCT USED FOR UNKNOWN INDICATION
  3. GLARGINE [Concomitant]
     Indication: PRODUCT USED FOR UNKNOWN INDICATION
  4. DEFINITY [Suspect]
     Active Substance: PERFLUTREN
     Dosage: DILUTED DEFINITY (DILUTION DETAILS UNKNOWN)
     Route: 040
     Dates: start: 20150810, end: 20150810
  5. LASIX [Concomitant]
     Active Substance: FUROSEMIDE
     Indication: PRODUCT USED FOR UNKNOWN INDICATION
  6. COREG [Concomitant]
     Active Substance: CARVEDILOL
     Indication: PRODUCT USED FOR UNKNOWN INDICATION
  7. NOVOLOG [Concomitant]
     Active Substance: INSULIN ASPART
     Indication: PRODUCT USED FOR UNKNOWN INDICATION
  8. KCL [Concomitant]
     Active Substance: POTASSIUM CHLORIDE
     Indication: PRODUCT USED FOR UNKNOWN INDICATION
     Dosage: TWICE DAILY
  9. OMEGA-3 FISH OIL [Concomitant]
     Active Substance: FISH OIL\OMEGA-3 FATTY ACIDS
     Indication: PRODUCT USED FOR UNKNOWN INDICATION
  10. ASPIRIN. [Concomitant]
     Active Substance: ASPIRIN
     Indication: PRODUCT USED FOR UNKNOWN INDICATION
  11. SYNTHROID [Concomitant]
     Active Substance: LEVOTHYROXINE SODIUM
     Indication: PRODUCT USED FOR UNKNOWN INDICATION
  12. LOSARTAN. [Concomitant]
     Active Substance: LOSARTAN
     Indication: PRODUCT USED FOR UNKNOWN INDICATION
  13. PROTONIX EC [Concomitant]
     Indication: PRODUCT USED FOR UNKNOWN INDICATION
  14. TRICOR [Concomitant]
     Active Substance: FENOFIBRATE
     Indication: PRODUCT USED FOR UNKNOWN INDICATION
  15. DEFINITY [Suspect]
     Active Substance: PERFLUTREN
     Dosage: DILUTED DEFINITY (DILUTION DETAILS UNKNOWN)
     Route: 040
     Dates: start: 20150810, end: 20150810
  16. DEFINITY [Suspect]
     Active Substance: PERFLUTREN
     Indication: ECHOCARDIOGRAM
     Dosage: DILUTED DEFINITY (DILUTION DETAILS UNKNOWN)
     Route: 040
     Dates: start: 20150810, end: 20150810
  17. DEFINITY [Suspect]
     Active Substance: PERFLUTREN
     Dosage: DILUTED DEFINITY (DILUTION DETAILS UNKNOWN)
     Route: 040
     Dates: start: 20150810, end: 20150810
  18. NITROGLYCERIN. [Concomitant]
     Active Substance: NITROGLYCERIN
     Indication: PRODUCT USED FOR UNKNOWN INDICATION
     Route: 060

REACTIONS (5)
  - Muscle spasms [Recovered/Resolved]
  - Renal pain [Recovered/Resolved]
  - Back pain [Recovered/Resolved]
  - Neck pain [Recovered/Resolved]
  - Musculoskeletal pain [Recovered/Resolved]

NARRATIVE: CASE EVENT DATE: 20150810
